FAERS Safety Report 8788346 (Version 1)
Quarter: 2012Q4

REPORT INFORMATION
  Report Type: 
  Country: US (occurrence: US)
  Receive Date: 20120914
  Receipt Date: 20120914
  Transmission Date: 20130627
  Serious: No
  Sender: FDA-Public Use
  Company Number: US-VERTEX PHARMACEUTICAL INC.-AE-2012-011668

PATIENT
  Age: 59 Year
  Sex: Female
  Weight: 73.18 kg

DRUGS (3)
  1. INCIVEK [Suspect]
     Indication: HEPATITIS C
     Route: 048
     Dates: start: 20120525, end: 20120720
  2. PEGASYS [Concomitant]
     Indication: HEPATITIS C
     Dates: start: 20120525
  3. RIBAVIRIN [Concomitant]
     Indication: HEPATITIS C
     Route: 048
     Dates: start: 20120525

REACTIONS (1)
  - Anaemia [Recovered/Resolved]
